FAERS Safety Report 13257599 (Version 1)
Quarter: 2017Q1

REPORT INFORMATION
  Report Type: Spontaneous
  Country: US (occurrence: US)
  Receive Date: 20170221
  Receipt Date: 20170221
  Transmission Date: 20170428
  Serious: Yes (Disabling, Other)
  Sender: FDA-Public Use
  Company Number: US-SIGMAPHARM LABORATORIES, LLC-2017SIG00010

PATIENT
  Age: 25 Year
  Sex: Female

DRUGS (2)
  1. DISULFIRAM. [Suspect]
     Active Substance: DISULFIRAM
     Dosage: 500 MG, 1X/DAY (EVERY MORNING)
     Route: 048
  2. DISULFIRAM. [Suspect]
     Active Substance: DISULFIRAM
     Dosage: 500 MG, 1X/DAY (EVERY MORNING)
     Route: 048

REACTIONS (3)
  - Toxicity to various agents [Recovered/Resolved]
  - Abasia [Recovered/Resolved]
  - Neuropathy peripheral [Recovered/Resolved]
